FAERS Safety Report 8211757-6 (Version None)
Quarter: 2012Q1

REPORT INFORMATION
  Report Type: 
  Country: None (occurrence: None)
  Receive Date: 20120315
  Receipt Date: 20120309
  Transmission Date: 20120608
  Serious: No
  Sender: FDA-Public Use
  Company Number: US-BAYER-2012-025031

PATIENT
  Age: 38 Year
  Sex: Male
  Weight: 111.11 kg

DRUGS (7)
  1. GLIMEPIRIDE [Concomitant]
  2. GEMFIBROZIL [Concomitant]
  3. EFFEXOR XR [Concomitant]
  4. METFORMIN HCL [Concomitant]
  5. GEODON [Concomitant]
  6. ALEVE (CAPLET) [Suspect]
     Indication: PRODUCT USED FOR UNKNOWN INDICATION
     Dosage: AS NEEDED
     Route: 048
  7. LISINOPRIL [Concomitant]

REACTIONS (1)
  - NO ADVERSE EVENT [None]
